FAERS Safety Report 6735094-1 (Version None)
Quarter: 2010Q2

REPORT INFORMATION
  Report Type: 
  Country: None (occurrence: None)
  Receive Date: 20100519
  Receipt Date: 20100519
  Transmission Date: 20101027
  Serious: Yes (Hospitalization)
  Sender: FDA-Public Use
  Company Number: None

PATIENT
  Sex: Female
  Weight: 67.586 kg

DRUGS (4)
  1. OXALIPLATIN [Suspect]
     Indication: COLORECTAL CANCER
     Dosage: 1ST CYCLE IV
     Route: 042
     Dates: start: 20100430
  2. FLUOROURACIL [Suspect]
     Dates: start: 20100430
  3. FLUOROURACIL [Suspect]
     Dates: start: 20100501
  4. FOLINIC ACID [Concomitant]

REACTIONS (3)
  - GRAND MAL CONVULSION [None]
  - RESPIRATORY ARREST [None]
  - REVERSIBLE POSTERIOR LEUKOENCEPHALOPATHY SYNDROME [None]
